FAERS Safety Report 5002624-X (Version None)
Quarter: 2006Q2

REPORT INFORMATION
  Report Type: 
  Country: None (occurrence: None)
  Receive Date: 20060510
  Receipt Date: 20060426
  Transmission Date: 20061013
  Serious: Yes (Other)
  Sender: FDA-Public Use
  Company Number: 2006EU001388

PATIENT
  Age: 33 Year
  Sex: Female

DRUGS (2)
  1. PROGRAF [Suspect]
     Indication: RENAL TRANSPLANT
     Dosage: 4.5 MG, UID/QD, ORAL
     Route: 048
     Dates: start: 20000101
  2. IMURAN [Suspect]
     Indication: RENAL TRANSPLANT
     Dosage: 50 MG, UID/QD, ORAL
     Route: 048
     Dates: start: 20051206

REACTIONS (3)
  - ABORTION SPONTANEOUS [None]
  - DRUG EXPOSURE DURING PREGNANCY [None]
  - PREGNANCY [None]
